FAERS Safety Report 10778955 (Version 1)
Quarter: 2015Q1

REPORT INFORMATION
  Report Type: Spontaneous
  Country: US (occurrence: None)
  Receive Date: 20150205
  Receipt Date: 20150205
  Transmission Date: 20150721
  Serious: Yes (Death)
  Sender: FDA-Public Use
  Company Number: None

PATIENT
  Age: 66 Year
  Sex: Male
  Weight: 104.78 kg

DRUGS (24)
  1. NITROGLYCERIN. [Concomitant]
     Active Substance: NITROGLYCERIN
  2. RANITIDINE [Concomitant]
     Active Substance: RANITIDINE\RANITIDINE HYDROCHLORIDE
  3. CQ10 [Concomitant]
     Active Substance: UBIDECARENONE
  4. FUROSEMIDE. [Concomitant]
     Active Substance: FUROSEMIDE
  5. MULTI VITAMIN [Concomitant]
     Active Substance: VITAMINS
  6. ZINC [Concomitant]
     Active Substance: ZINC\ZINC CHLORIDE
  7. MAGNESIUM [Concomitant]
     Active Substance: MAGNESIUM
  8. BABY ASPIRIN [Concomitant]
     Active Substance: ASPIRIN
  9. DIOVAN [Concomitant]
     Active Substance: VALSARTAN
  10. CARVEDILOL. [Concomitant]
     Active Substance: CARVEDILOL
  11. PANTOPRAZOLE [Concomitant]
     Active Substance: PANTOPRAZOLE SODIUM
  12. VITAMIN D [Concomitant]
     Active Substance: CHOLECALCIFEROL
  13. CALCIUM [Concomitant]
     Active Substance: CALCIUM
  14. PLAVAX [Concomitant]
  15. VICTOZA [Concomitant]
     Active Substance: LIRAGLUTIDE
  16. LANTUS [Concomitant]
     Active Substance: INSULIN GLARGINE
  17. FOLIC ACID. [Concomitant]
     Active Substance: FOLIC ACID
  18. BREO ELLIPTA [Suspect]
     Active Substance: FLUTICASONE FUROATE\VILANTEROL TRIFENATATE
     Indication: CHRONIC OBSTRUCTIVE PULMONARY DISEASE
     Dosage: 1 INHALATION DAILY BY MOUTH
     Route: 048
     Dates: start: 20141209, end: 20141229
  19. NITROQUICK [Concomitant]
     Active Substance: NITROGLYCERIN
  20. METFORMIN (GLUCOPHAGE XR) [Concomitant]
  21. GLIPIZIDE. [Concomitant]
     Active Substance: GLIPIZIDE
  22. POTASSIUM [Concomitant]
     Active Substance: POTASSIUM
  23. LIPITOR [Concomitant]
     Active Substance: ATORVASTATIN CALCIUM
  24. VITAMIN B COMPLEX [Concomitant]
     Active Substance: CYANOCOBALAMIN\DEXPANTHENOL\NIACINAMIDE\PYRIDOXINE HYDROCHLORIDE\RIBOFLAVIN 5^-PHOSPHATE SODIUM\THIAMINE HYDROCHLORIDE\VITAMIN B COMPLEX

REACTIONS (3)
  - Respiratory disorder [None]
  - Dizziness [None]
  - Nausea [None]

NARRATIVE: CASE EVENT DATE: 20141229
